FAERS Safety Report 6006904-0 (Version None)
Quarter: 2008Q4

REPORT INFORMATION
  Report Type: 
  Country: None (occurrence: None)
  Receive Date: 20081217
  Receipt Date: 20081208
  Transmission Date: 20090506
  Serious: No
  Sender: FDA-Public Use
  Company Number: BR-ASTRAZENECA-2008UW27321

PATIENT
  Age: 54 Year
  Sex: Male

DRUGS (1)
  1. SELOZOK [Suspect]
     Route: 048
     Dates: start: 20060101

REACTIONS (1)
  - ANXIETY [None]
